FAERS Safety Report 7321153-1 (Version None)
Quarter: 2011Q1

REPORT INFORMATION
  Report Type: 
  Country: None (occurrence: None)
  Receive Date: 20110228
  Receipt Date: 20110217
  Transmission Date: 20110831
  Serious: Yes (Hospitalization)
  Sender: FDA-Public Use
  Company Number: FR-SANOFI-AVENTIS-2011SA010810

PATIENT
  Age: 62 Year
  Sex: Female

DRUGS (8)
  1. LASIX [Suspect]
     Route: 048
     Dates: start: 20101104, end: 20101209
  2. LEVOTHYROXINE SODIUM [Concomitant]
     Route: 048
  3. ALLOPURINOL [Suspect]
     Route: 048
     Dates: start: 20100701, end: 20101209
  4. GLUCOPHAGE [Concomitant]
     Route: 048
  5. APROVEL [Concomitant]
  6. TEMESTA [Concomitant]
     Route: 048
  7. GLIMEPIRIDE [Concomitant]
  8. SIMVASTATIN [Concomitant]

REACTIONS (5)
  - EOSINOPHIL COUNT [None]
  - RENAL FAILURE [None]
  - DRUG RASH WITH EOSINOPHILIA AND SYSTEMIC SYMPTOMS [None]
  - PRURITUS [None]
  - RASH [None]
